FAERS Safety Report 20894214 (Version 1)
Quarter: 2022Q2

REPORT INFORMATION
  Report Type: Report from Study
  Country: US (occurrence: US)
  Receive Date: 20220531
  Receipt Date: 20220531
  Transmission Date: 20220721
  Serious: Yes (Hospitalization, Other)
  Sender: FDA-Public Use
  Company Number: US-BRISTOL-MYERS SQUIBB COMPANY-BMS-2021-026275

PATIENT
  Sex: Female
  Weight: 76.19 kg

DRUGS (4)
  1. NIVOLUMAB [Suspect]
     Active Substance: NIVOLUMAB
     Indication: Pancreatic carcinoma metastatic
     Dosage: 240 MILLIGRAM
     Route: 065
     Dates: start: 20190211, end: 20190812
  2. PACLITAXEL [Suspect]
     Active Substance: PACLITAXEL
     Indication: Pancreatic carcinoma metastatic
     Dosage: 125 MILLIGRAM/SQ. METER
     Route: 065
     Dates: start: 20190211, end: 20190812
  3. INVESTIGATIONAL PRODUCT [Suspect]
     Active Substance: INVESTIGATIONAL PRODUCT
     Indication: Pancreatic carcinoma metastatic
     Dosage: 0.3 MILLIGRAM/KILOGRAM
     Route: 065
     Dates: start: 20190213, end: 20190711
  4. GEMCITABINE [Suspect]
     Active Substance: GEMCITABINE
     Indication: Pancreatic carcinoma metastatic
     Dosage: 1000 MILLIGRAM/SQ. METER
     Route: 065
     Dates: start: 20190211, end: 20190812

REACTIONS (7)
  - Sepsis [Recovered/Resolved]
  - Mesenteric vein thrombosis [Unknown]
  - Urinary retention [Unknown]
  - Myelosuppression [Unknown]
  - Malnutrition [Unknown]
  - International normalised ratio increased [Unknown]
  - Hypertension [Unknown]

NARRATIVE: CASE EVENT DATE: 20190814
